FAERS Safety Report 5810827-7 (Version None)
Quarter: 2008Q3

REPORT INFORMATION
  Report Type: 
  Country: None (occurrence: None)
  Receive Date: 20080710
  Receipt Date: 20080630
  Transmission Date: 20090109
  Serious: Yes (Life-Threatening, Hospitalization, Other)
  Sender: FDA-Public Use
  Company Number: 2008S1007166

PATIENT
  Age: 44 Year
  Sex: Female
  Weight: 76.6579 kg

DRUGS (6)
  1. METHOTREXATE [Suspect]
     Indication: RHEUMATOID ARTHRITIS
     Dosage: ORAL
     Route: 048
  2. ADALIMUMAB [Suspect]
     Indication: RHEUMATOID ARTHRITIS
     Dosage: SUBCUTANEOUS
     Route: 058
     Dates: start: 20080107, end: 20080107
  3. AMLODIPINE BESYLATE [Concomitant]
  4. IBUPROFEN [Concomitant]
  5. ACETAMINOPHEN [Concomitant]
  6. ACETAMINOPHEN W/ CODEINE [Concomitant]

REACTIONS (19)
  - ACUTE RESPIRATORY DISTRESS SYNDROME [None]
  - ANAEMIA [None]
  - CATHETER RELATED COMPLICATION [None]
  - CONDITION AGGRAVATED [None]
  - ENCEPHALOPATHY [None]
  - FATIGUE [None]
  - GASTROINTESTINAL HAEMORRHAGE [None]
  - HYPERCAPNIA [None]
  - HYPOXIA [None]
  - INTERSTITIAL LUNG DISEASE [None]
  - MALNUTRITION [None]
  - MYOPATHY [None]
  - NAUSEA [None]
  - PAIN [None]
  - PNEUMONIA [None]
  - POOR VENOUS ACCESS [None]
  - RESPIRATORY FAILURE [None]
  - THROMBOSIS [None]
  - ULCER [None]
